FAERS Safety Report 23549764 (Version 2)
Quarter: 2024Q2

REPORT INFORMATION
  Report Type: Spontaneous
  Country: US (occurrence: US)
  Receive Date: 20240221
  Receipt Date: 20240403
  Transmission Date: 20240716
  Serious: Yes (Other)
  Sender: FDA-Public Use
  Company Number: US-BRISTOL-MYERS SQUIBB COMPANY-2024-027904

PATIENT
  Age: 54 Year
  Sex: Male

DRUGS (3)
  1. SPRYCEL [Suspect]
     Active Substance: DASATINIB
     Indication: Product used for unknown indication
     Route: 048
     Dates: start: 202401
  2. SPRYCEL [Suspect]
     Active Substance: DASATINIB
     Route: 048
     Dates: start: 202401
  3. LORATADINE [Suspect]
     Active Substance: LORATADINE
     Indication: Seasonal allergy

REACTIONS (10)
  - Headache [Unknown]
  - Nausea [Unknown]
  - Fluid retention [Unknown]
  - Fatigue [Unknown]
  - Weight increased [Unknown]
  - Seasonal allergy [Unknown]
  - Rash erythematous [Unknown]
  - Chills [Unknown]
  - Mental impairment [Unknown]
  - Balance disorder [Unknown]
